FAERS Safety Report 9377034 (Version 2)
Quarter: 2013Q3

REPORT INFORMATION
  Report Type: Spontaneous
  Country: US (occurrence: US)
  Receive Date: 20130701
  Receipt Date: 20130717
  Transmission Date: 20140515
  Serious: Yes (Other)
  Sender: FDA-Public Use
  Company Number: US-PFIZER INC-2013191849

PATIENT
  Age: 22 Year
  Sex: Female

DRUGS (3)
  1. NEURONTIN [Suspect]
     Dosage: 600 MG, 3X/DAY (TAKE 1 T.I.D)
  2. SEROQUEL [Concomitant]
     Dosage: 200 MG, 1X/DAY (1 HS)
  3. BUSPIRONE [Concomitant]
     Dosage: 10 MG, 3X/DAY (T.I.D)

REACTIONS (3)
  - Drug dependence [Unknown]
  - Anxiety [Unknown]
  - Panic disorder [Unknown]
